FAERS Safety Report 21856572 (Version 2)
Quarter: 2023Q1

REPORT INFORMATION
  Report Type: Report from Study
  Country: US (occurrence: US)
  Receive Date: 20230112
  Receipt Date: 20230209
  Transmission Date: 20230417
  Serious: Yes (Death, Other)
  Sender: FDA-Public Use
  Company Number: US-ACADIA PHARMACEUTICALS INC.-ACA-2023-PIM-000021

PATIENT
  Sex: Male

DRUGS (6)
  1. NUPLAZID [Suspect]
     Active Substance: PIMAVANSERIN TARTRATE
     Indication: Parkinson^s disease psychosis
     Dosage: 34 MILLIGRAM, QD
     Route: 065
     Dates: start: 20220924, end: 20221220
  2. SINEMET [Concomitant]
     Active Substance: CARBIDOPA\LEVODOPA
     Dosage: 25/100, 2 TABLETS BY MOUTH EVERY 4 HOURS
  3. COMTAN [Concomitant]
     Active Substance: ENTACAPONE
     Dosage: 200 MG, 1 EVERY 4 HOURS
  4. ROPINIROLE [Concomitant]
     Active Substance: ROPINIROLE
     Dosage: 2MG TABS, 2 TABS(=4MG) AT BED TIME
  5. DIAZEPAM [Concomitant]
     Active Substance: DIAZEPAM
     Dosage: 5 MILLIGRAM, 1 HALF TAB AT BED TIME
  6. MIRALAX [Concomitant]
     Active Substance: POLYETHYLENE GLYCOL 3350
     Dosage: ONE UNIT DOSE DAILY ON MONDAY, WEDNESDAY AND FRIDAY

REACTIONS (1)
  - Parkinson^s disease [Recovered/Resolved]
